FAERS Safety Report 6243536-3 (Version None)
Quarter: 2009Q2

REPORT INFORMATION
  Report Type: 
  Country: None (occurrence: None)
  Receive Date: 20090624
  Receipt Date: 20090615
  Transmission Date: 20091009
  Serious: Yes (Hospitalization, Other)
  Sender: FDA-Public Use
  Company Number: PHHY2009TR23545

PATIENT
  Age: 30 Year
  Sex: Female

DRUGS (2)
  1. PARLODEL [Suspect]
     Indication: HYPERPROLACTINAEMIA
     Dosage: 5 MG, BID
     Route: 048
     Dates: start: 20020101
  2. FOLIC ACID [Concomitant]

REACTIONS (5)
  - ABORTION INDUCED [None]
  - ABORTION THREATENED [None]
  - ANTEPARTUM HAEMORRHAGE [None]
  - DRUG EXPOSURE DURING PREGNANCY [None]
  - STILLBIRTH [None]
